FAERS Safety Report 19780626 (Version 4)
Quarter: 2022Q1

REPORT INFORMATION
  Report Type: Report from Study
  Country: TR (occurrence: TR)
  Receive Date: 20210902
  Receipt Date: 20220323
  Transmission Date: 20220423
  Serious: Yes (Death, Hospitalization, Other)
  Sender: FDA-Public Use
  Company Number: TR-JNJFOC-20210855365

PATIENT

DRUGS (18)
  1. REMICADE [Suspect]
     Active Substance: INFLIXIMAB
     Indication: Rheumatic disorder
     Route: 042
  2. CANAKINUMAB [Suspect]
     Active Substance: CANAKINUMAB
     Indication: Rheumatic disorder
     Route: 065
  3. ADALIMUMAB [Suspect]
     Active Substance: ADALIMUMAB
     Indication: Rheumatic disorder
     Route: 065
  4. ETANERCEPT [Suspect]
     Active Substance: ETANERCEPT
     Indication: Rheumatic disorder
     Route: 065
  5. TOCILIZUMAB [Suspect]
     Active Substance: TOCILIZUMAB
     Indication: Rheumatic disorder
     Route: 065
  6. ANAKINRA [Suspect]
     Active Substance: ANAKINRA
     Indication: Rheumatic disorder
     Route: 065
  7. RITUXIMAB [Suspect]
     Active Substance: RITUXIMAB
     Indication: Rheumatic disorder
     Route: 065
  8. TOFACITINIB [Suspect]
     Active Substance: TOFACITINIB
     Indication: Rheumatic disorder
     Route: 065
  9. ABATACEPT [Suspect]
     Active Substance: ABATACEPT
     Indication: Product used for unknown indication
  10. METHOTREXATE [Concomitant]
     Active Substance: METHOTREXATE
  11. LEFLUNOMIDE [Concomitant]
     Active Substance: LEFLUNOMIDE
  12. SULFASALAZINE [Concomitant]
     Active Substance: SULFASALAZINE
  13. COLCHICINE [Concomitant]
     Active Substance: COLCHICINE
  14. MYCOPHENOLATE MOFETIL [Concomitant]
     Active Substance: MYCOPHENOLATE MOFETIL
  15. CYCLOSPORINE [Concomitant]
     Active Substance: CYCLOSPORINE
  16. AZATHIOPRINE [Concomitant]
     Active Substance: AZATHIOPRINE
  17. SULFASALAZINE [Concomitant]
     Active Substance: SULFASALAZINE
  18. HYDROXYCHLOROQUINE [Concomitant]
     Active Substance: HYDROXYCHLOROQUINE

REACTIONS (9)
  - Cardiomyopathy [Fatal]
  - Multisystem inflammatory syndrome in children [Fatal]
  - Pneumonia viral [Unknown]
  - Hospitalisation [Unknown]
  - COVID-19 [Unknown]
  - Lymphopenia [Unknown]
  - Hyperferritinaemia [Unknown]
  - Acute phase reaction [Unknown]
  - Fibrin D dimer increased [Unknown]
